FAERS Safety Report 13540942 (Version 2)
Quarter: 2020Q4

REPORT INFORMATION
  Report Type: Report from Study
  Country: BD (occurrence: BD)
  Receive Date: 20170512
  Receipt Date: 20201025
  Transmission Date: 20210113
  Serious: Yes (Hospitalization)
  Sender: FDA-Public Use
  Company Number: PHHY2017BD069731

PATIENT
  Sex: Male

DRUGS (1)
  1. EXELON PATCH [Suspect]
     Active Substance: RIVASTIGMINE
     Indication: DEMENTIA
     Dosage: 4.6 MG, QD (PATCH 5 CM2)
     Route: 062

REACTIONS (1)
  - Dengue fever [Unknown]
